FAERS Safety Report 4879546-8 (Version None)
Quarter: 2006Q1

REPORT INFORMATION
  Report Type: 
  Country: None (occurrence: None)
  Receive Date: 20060111
  Receipt Date: 20060103
  Transmission Date: 20060701
  Serious: Yes (Other)
  Sender: FDA-Public Use
  Company Number: US-2005-019574

PATIENT
  Age: 44 Year
  Sex: Female

DRUGS (2)
  1. BETASERON [Suspect]
     Indication: MULTIPLE SCLEROSIS
     Dosage: SUBCUTANEOUS
     Route: 058
     Dates: start: 19980101, end: 20040827
  2. NOVANTRONE [Concomitant]

REACTIONS (6)
  - CORONARY ARTERY OCCLUSION [None]
  - MULTIPLE SCLEROSIS RELAPSE [None]
  - PAIN [None]
  - PYREXIA [None]
  - SKIN NECROSIS [None]
  - TREMOR [None]
